FAERS Safety Report 23038786 (Version 1)
Quarter: 2023Q4

REPORT INFORMATION
  Report Type: Spontaneous
  Country: PT (occurrence: PT)
  Receive Date: 20231006
  Receipt Date: 20231006
  Transmission Date: 20240110
  Serious: Yes (Other)
  Sender: FDA-Public Use
  Company Number: None

PATIENT
  Age: 55 Year
  Sex: Male
  Weight: 69 kg

DRUGS (1)
  1. CLARITHROMYCIN [Suspect]
     Active Substance: CLARITHROMYCIN
     Indication: Pulpitis dental
     Dosage: 500 MILLIGRAM, QD (1 TABLET)
     Route: 048
     Dates: start: 20230914

REACTIONS (4)
  - Excessive cerumen production [Recovering/Resolving]
  - Ear pain [Recovering/Resolving]
  - Ear inflammation [Recovering/Resolving]
  - Hypoacusis [Recovering/Resolving]

NARRATIVE: CASE EVENT DATE: 20230916
